FAERS Safety Report 9399252 (Version 1)
Quarter: 2013Q3

REPORT INFORMATION
  Report Type: Spontaneous
  Country: FR (occurrence: None)
  Receive Date: 20130710
  Receipt Date: 20130710
  Transmission Date: 20140515
  Serious: Yes (Hospitalization)
  Sender: FDA-Public Use
  Company Number: 2013000156

PATIENT
  Age: 58 Year
  Sex: Male

DRUGS (5)
  1. ACEON (PERINDOPRIL ERBUMINE) TABLET [Suspect]
     Indication: CARDIAC DISORDER
     Route: 048
     Dates: start: 20130401, end: 20130410
  2. KREDEX [Suspect]
     Indication: CARDIAC DISORDER
     Route: 048
     Dates: start: 20130401, end: 20130410
  3. KARDEGIC [Suspect]
     Indication: CARDIAC DISORDER
     Route: 048
     Dates: start: 20130401
  4. TAHOR [Suspect]
     Indication: CARDIAC DISORDER
     Route: 048
     Dates: start: 20130401, end: 20130410
  5. BRILIQUE [Suspect]
     Indication: CARDIAC DISORDER
     Route: 048
     Dates: start: 20130401, end: 20130410

REACTIONS (5)
  - Hepatic enzyme increased [None]
  - Drug eruption [None]
  - Vomiting [None]
  - Pruritus [None]
  - Pyrexia [None]
